FAERS Safety Report 21976379 (Version 2)
Quarter: 2023Q1

REPORT INFORMATION
  Report Type: Report from Study
  Country: KR (occurrence: KR)
  Receive Date: 20230210
  Receipt Date: 20230317
  Transmission Date: 20230418
  Serious: Yes (Death)
  Sender: FDA-Public Use
  Company Number: KR-TAKEDA-2023TUS013983

PATIENT
  Age: 72 Year
  Sex: Male
  Weight: 64.2 kg

DRUGS (12)
  1. BRIGATINIB [Suspect]
     Active Substance: BRIGATINIB
     Indication: Non-small cell lung cancer
     Dosage: 90 MILLIGRAM, QD
     Route: 048
     Dates: start: 20210406
  2. BRIGATINIB [Suspect]
     Active Substance: BRIGATINIB
     Dosage: 180 MILLIGRAM, QD
     Route: 048
     Dates: start: 20210414
  3. GEMZAR [Concomitant]
     Active Substance: GEMCITABINE HYDROCHLORIDE
     Dosage: UNK
     Route: 065
     Dates: start: 20210514
  4. CISPLATIN [Concomitant]
     Active Substance: CISPLATIN
     Dosage: UNK
     Route: 065
     Dates: start: 20210514, end: 20210514
  5. TRAMADOL HYDROCHLORIDE [Concomitant]
     Active Substance: TRAMADOL HYDROCHLORIDE
     Indication: Lung neoplasm malignant
     Dosage: UNK
     Route: 048
     Dates: start: 20210406, end: 20210510
  6. ALBUMIN HUMAN [Concomitant]
     Active Substance: ALBUMIN HUMAN
     Indication: Hypoalbuminaemia
     Dosage: UNK
     Route: 042
     Dates: start: 20210414
  7. PANTOPRAZOLE SODIUM [Concomitant]
     Active Substance: PANTOPRAZOLE SODIUM
     Dosage: UNK
     Route: 042
     Dates: start: 20210415
  8. COMBICIN [Concomitant]
     Dosage: UNK
     Route: 042
     Dates: start: 20210424
  9. FENTANYL [Concomitant]
     Active Substance: FENTANYL
     Indication: Lung neoplasm malignant
     Dosage: UNK
     Route: 065
     Dates: start: 20210428
  10. ACTIQ [Concomitant]
     Active Substance: FENTANYL CITRATE
     Indication: Lung neoplasm malignant
     Dosage: UNK
     Route: 048
     Dates: start: 20210503
  11. NALOXONE HYDROCHLORIDE\OXYCODONE HYDROCHLORIDE [Concomitant]
     Active Substance: NALOXONE HYDROCHLORIDE\OXYCODONE HYDROCHLORIDE
     Indication: Lung neoplasm malignant
     Dosage: UNK
     Route: 065
     Dates: start: 20210408
  12. SALON [Concomitant]
     Indication: Chemotherapy
     Dosage: UNK
     Route: 042
     Dates: start: 20210406

REACTIONS (1)
  - Pleural effusion [Fatal]

NARRATIVE: CASE EVENT DATE: 20210610
